FAERS Safety Report 14034314 (Version 3)
Quarter: 2018Q1

REPORT INFORMATION
  Report Type: Spontaneous
  Country: AU (occurrence: AU)
  Receive Date: 20171003
  Receipt Date: 20180315
  Transmission Date: 20180508
  Serious: Yes (Other)
  Sender: FDA-Public Use
  Company Number: AU-PFIZER INC-2017417260

PATIENT
  Age: 65 Year
  Sex: Male
  Weight: 87 kg

DRUGS (17)
  1. MIRTAZAPINE. [Concomitant]
     Active Substance: MIRTAZAPINE
     Dosage: 30 MG, DAILY, NOCTE
  2. CLOPINE [Suspect]
     Active Substance: CLOZAPINE
     Dosage: 175 MG, DAILY
     Dates: start: 20170815
  3. MOVICOL [Concomitant]
     Active Substance: POLYETHYLENE GLYCOL 3350\POTASSIUM CHLORIDE\SODIUM BICARBONATE\SODIUM CHLORIDE
     Dosage: 1 DF, 2X/DAY
  4. CLOPINE [Suspect]
     Active Substance: CLOZAPINE
     Dosage: 150 MG, UNK
     Dates: end: 20170915
  5. OXAZEPAM. [Concomitant]
     Active Substance: OXAZEPAM
     Dosage: 7.5 MG, DAILY, NOCTE
  6. BISOPROLOL FUMARATE. [Suspect]
     Active Substance: BISOPROLOL FUMARATE
     Dosage: UNK
  7. ASPIRIN. [Concomitant]
     Active Substance: ASPIRIN
     Dosage: 100 MG, DAILY, MANE
  8. TEMAZEPAM. [Concomitant]
     Active Substance: TEMAZEPAM
     Dosage: 20 MG, 1X/DAY AT NIGHT NOCTE
  9. ARIPIPRAZOLE. [Concomitant]
     Active Substance: ARIPIPRAZOLE
     Dosage: 15 MG, 1X/DAY AT NIGHT NOCTE
  10. ATORVASTATIN [Concomitant]
     Active Substance: ATORVASTATIN
     Dosage: 10 MG, DAILY, NOCTE
  11. CHOLECALCIFEROL [Concomitant]
     Active Substance: CHOLECALCIFEROL
     Dosage: 25 UG, DAILY
  12. COLOXYL WITH SENNA [Concomitant]
     Active Substance: DOCUSATE\SENNOSIDES
     Dosage: 2 DF, 2X/DAY
  13. RAMIPRIL. [Suspect]
     Active Substance: RAMIPRIL
     Dosage: UNK
     Dates: end: 20170819
  14. ARIPIPRAZOLE. [Concomitant]
     Active Substance: ARIPIPRAZOLE
     Dosage: 5 MG, DAILY, MANE
  15. TEMAZEPAM. [Concomitant]
     Active Substance: TEMAZEPAM
     Dosage: 10 MG, DAILY, NOCTE
  16. POTASSIUM CHLORIDE. [Concomitant]
     Active Substance: POTASSIUM CHLORIDE
     Dosage: 600 MG, DAILY MANE
  17. DESMOPRESSIN [Concomitant]
     Active Substance: DESMOPRESSIN
     Dosage: 240 MG, DAILY NOCTE

REACTIONS (5)
  - Hypotension [Recovered/Resolved]
  - Heart rate irregular [Unknown]
  - Tachycardia [Unknown]
  - C-reactive protein increased [Unknown]
  - Cardiomyopathy [Unknown]

NARRATIVE: CASE EVENT DATE: 201709
